FAERS Safety Report 9308457 (Version 2)
Quarter: 2013Q2

REPORT INFORMATION
  Report Type: Spontaneous
  Country: US (occurrence: US)
  Receive Date: 20130524
  Receipt Date: 20130618
  Transmission Date: 20140414
  Serious: Yes (Hospitalization, Other)
  Sender: FDA-Public Use
  Company Number: US-BAYER-2013-064906

PATIENT
  Age: 39 Year
  Sex: Female
  Weight: 75.28 kg

DRUGS (1)
  1. MIRENA [Suspect]
     Indication: CONTRACEPTION
     Dosage: 20 MCG/24HR, CONT
     Route: 015
     Dates: start: 20130516

REACTIONS (3)
  - Genital haemorrhage [None]
  - Pain [None]
  - Abdominal pain lower [None]
